FAERS Safety Report 21259049 (Version 11)
Quarter: 2022Q4

REPORT INFORMATION
  Report Type: Report from Study
  Country: KR (occurrence: None)
  Receive Date: 20220826
  Receipt Date: 20221216
  Transmission Date: 20230113
  Serious: Yes (Hospitalization, Other)
  Sender: FDA-Public Use
  Company Number: KR-ROCHE-3122279

PATIENT
  Age: 70 Year
  Sex: Male

DRUGS (85)
  1. ATEZOLIZUMAB [Suspect]
     Active Substance: ATEZOLIZUMAB
     Indication: Oesophageal cancer metastatic
     Dosage: START DATE OF MOST RECENT DOSE OF 1200 MG ATEZOLIZUMAB PRIOR TO AE: 13/JUN/2022 AND 29/AUG/2022
     Route: 041
     Dates: start: 20220613
  2. FLUOROURACIL [Suspect]
     Active Substance: FLUOROURACIL
     Indication: Oesophageal cancer metastatic
     Dosage: MOST RECENT DOSE OF STUDY DRUG PRIOR TO ACUTE KIDNEY INJURY: 18.JUN/2022 AT 6000 MG?MOST RECENT DOSE
     Route: 042
     Dates: start: 20220613
  3. CISPLATIN [Suspect]
     Active Substance: CISPLATIN
     Indication: Oesophageal cancer metastatic
     Dosage: START DATE OF MOST RECENT DOSE OF 90 MG CISPLATIN PRIOR TO AE: 13/JUN/2022?START DATE OF MOST RECENT
     Route: 042
     Dates: start: 20220613
  4. PELUBI [Concomitant]
     Indication: Tumour pain
     Route: 048
     Dates: start: 20220611, end: 20220614
  5. MUCOTECT [Concomitant]
     Route: 048
     Dates: start: 20220611, end: 20220614
  6. RABEROZE [Concomitant]
     Route: 048
     Dates: start: 20220611, end: 20220614
  7. ALFOATILIN [Concomitant]
     Route: 048
     Dates: start: 20220613
  8. REBAMIPIDE [Concomitant]
     Active Substance: REBAMIPIDE
     Route: 048
     Dates: start: 20220613, end: 20220618
  9. FEBUXOSTAT [Concomitant]
     Active Substance: FEBUXOSTAT
     Indication: Gout
     Route: 048
     Dates: start: 20220613, end: 20220618
  10. FEBUXOSTAT [Concomitant]
     Active Substance: FEBUXOSTAT
     Route: 048
     Dates: start: 20220621
  11. RABEPRAZOLE SODIUM [Concomitant]
     Active Substance: RABEPRAZOLE SODIUM
     Route: 048
     Dates: start: 20220613, end: 20220618
  12. EMEND INJECTION [Concomitant]
     Route: 042
     Dates: start: 20220613, end: 20220613
  13. EMEND INJECTION [Concomitant]
     Route: 042
     Dates: start: 20220829
  14. ALOXI [Concomitant]
     Active Substance: PALONOSETRON HYDROCHLORIDE
     Route: 042
     Dates: start: 20220613, end: 20220613
  15. LASIX [Concomitant]
     Active Substance: FUROSEMIDE
     Route: 048
     Dates: start: 20220613, end: 20220613
  16. LASIX [Concomitant]
     Active Substance: FUROSEMIDE
     Route: 048
     Dates: start: 20220829
  17. TRAMADOL HYDROCHLORIDE [Concomitant]
     Active Substance: TRAMADOL HYDROCHLORIDE
     Indication: Tumour pain
     Route: 042
     Dates: start: 20220613, end: 20221129
  18. METOCLOPRAMIDE HYDROCHLORIDE [Concomitant]
     Active Substance: METOCLOPRAMIDE HYDROCHLORIDE
     Indication: Nausea
     Route: 042
     Dates: start: 20220613
  19. METOCLOPRAMIDE HYDROCHLORIDE [Concomitant]
     Active Substance: METOCLOPRAMIDE HYDROCHLORIDE
     Route: 042
     Dates: start: 20220829
  20. METOCLOPRAMIDE HYDROCHLORIDE [Concomitant]
     Active Substance: METOCLOPRAMIDE HYDROCHLORIDE
     Route: 048
     Dates: start: 20221016
  21. FENTANYL [Concomitant]
     Active Substance: FENTANYL
     Indication: Tumour pain
     Route: 061
     Dates: start: 20220614
  22. FENTANYL [Concomitant]
     Active Substance: FENTANYL
     Route: 061
     Dates: start: 20220616
  23. FENTANYL [Concomitant]
     Active Substance: FENTANYL
     Route: 061
     Dates: start: 20220628
  24. TANTUM [Concomitant]
     Active Substance: BENZYDAMINE HYDROCHLORIDE
     Route: 061
     Dates: start: 20220617
  25. MORPHINE SULFATE [Concomitant]
     Active Substance: MORPHINE SULFATE
     Indication: Tumour pain
     Route: 042
     Dates: start: 20220614
  26. MORPHINE SULFATE [Concomitant]
     Active Substance: MORPHINE SULFATE
     Route: 042
     Dates: start: 20220617
  27. CHOLINE ALFOSCERATE [Concomitant]
     Active Substance: CHOLINE ALFOSCERATE
     Route: 048
     Dates: start: 20220621, end: 20220701
  28. LIPITOR [Concomitant]
     Active Substance: ATORVASTATIN CALCIUM
     Indication: Hyperlipidaemia
     Route: 048
     Dates: start: 20220621
  29. METHYLCOBALAMIN [Concomitant]
     Active Substance: METHYLCOBALAMIN
     Indication: Prophylaxis
     Route: 048
     Dates: start: 20210102, end: 20220701
  30. METHYLCOBALAMIN [Concomitant]
     Active Substance: METHYLCOBALAMIN
     Route: 048
     Dates: start: 20221211
  31. MEPERIDINE [Concomitant]
     Active Substance: MEPERIDINE
     Indication: Tumour pain
     Route: 030
     Dates: start: 20220622, end: 20221129
  32. CEFTRIAXONE [Concomitant]
     Active Substance: CEFTRIAXONE
     Indication: COVID-19
     Route: 042
     Dates: start: 20220622, end: 20220623
  33. CEFTRIAXONE [Concomitant]
     Active Substance: CEFTRIAXONE
     Indication: Pyrexia
     Route: 042
     Dates: start: 20220815, end: 20220815
  34. CEFTRIAXONE [Concomitant]
     Active Substance: CEFTRIAXONE
     Route: 042
     Dates: start: 20220830, end: 20220903
  35. WINUF [Concomitant]
     Route: 042
     Dates: start: 20220627
  36. WINUF [Concomitant]
     Route: 042
     Dates: start: 20220830
  37. LASIX [Concomitant]
     Active Substance: FUROSEMIDE
     Indication: Localised oedema
     Route: 042
     Dates: start: 20220628, end: 20220628
  38. PENIRAMIN [Concomitant]
     Route: 042
     Dates: start: 20220628, end: 20220628
  39. NORZYME [Concomitant]
     Route: 048
     Dates: start: 20220629
  40. BACLOFEN [Concomitant]
     Active Substance: BACLOFEN
     Indication: Hiccups
     Route: 048
     Dates: start: 20220629, end: 20220704
  41. GANAKHAN [Concomitant]
     Route: 048
     Dates: start: 20220629, end: 20220726
  42. FILGRASTIM [Concomitant]
     Active Substance: FILGRASTIM
     Route: 058
     Dates: start: 20220630
  43. BOLGRE [Concomitant]
     Indication: Anaemia
     Route: 048
     Dates: start: 20220630, end: 20221001
  44. BOLGRE [Concomitant]
     Route: 048
     Dates: start: 20221011, end: 20221015
  45. BOLGRE [Concomitant]
     Route: 048
     Dates: start: 20221030
  46. CACL2 [Concomitant]
     Indication: Hypocalcaemia
     Route: 042
     Dates: start: 20220703, end: 20220703
  47. FENTORA [Concomitant]
     Active Substance: FENTANYL CITRATE
     Indication: Tumour pain
     Route: 048
     Dates: start: 20220617
  48. PROPACETAMOL HYDROCHLORIDE [Concomitant]
     Active Substance: PROPACETAMOL HYDROCHLORIDE
     Indication: COVID-19
     Route: 042
     Dates: start: 20220815, end: 20220816
  49. PROPACETAMOL HYDROCHLORIDE [Concomitant]
     Active Substance: PROPACETAMOL HYDROCHLORIDE
     Indication: Pyrexia
     Route: 042
     Dates: start: 20220830, end: 20220903
  50. TAZOPERAN [Concomitant]
     Indication: COVID-19
     Route: 042
     Dates: start: 20220816, end: 20220823
  51. TAZOPERAN [Concomitant]
     Indication: Pneumonia
     Route: 042
     Dates: start: 20220903, end: 20220912
  52. COTRIM [Concomitant]
     Active Substance: SULFAMETHOXAZOLE\TRIMETHOPRIM
     Indication: COVID-19
     Route: 042
     Dates: start: 20220816, end: 20220822
  53. PROFA [Concomitant]
     Indication: COVID-19
     Route: 042
     Dates: start: 20220816, end: 20220816
  54. VEKLURY [Concomitant]
     Active Substance: REMDESIVIR
     Indication: COVID-19
     Route: 042
     Dates: start: 20220816, end: 20220816
  55. VEKLURY [Concomitant]
     Active Substance: REMDESIVIR
     Route: 042
     Dates: start: 20220817, end: 20220820
  56. DEXAMETHASONE [Concomitant]
     Active Substance: DEXAMETHASONE
     Indication: COVID-19
     Route: 042
     Dates: start: 20220816, end: 20220822
  57. DEXAMETHASONE [Concomitant]
     Active Substance: DEXAMETHASONE
     Indication: Pyrexia
     Route: 042
     Dates: start: 20220830, end: 20220830
  58. COMBIFLEX (SOUTH KOREA) [Concomitant]
     Route: 042
     Dates: start: 20220816, end: 20220822
  59. FURTMAN [Concomitant]
     Route: 042
     Dates: start: 20220816, end: 20220822
  60. FURTMAN [Concomitant]
     Route: 042
     Dates: start: 20220830
  61. CODEINE [Concomitant]
     Active Substance: CODEINE
     Indication: COVID-19
     Route: 048
     Dates: start: 20220817, end: 20220822
  62. CODEINE [Concomitant]
     Active Substance: CODEINE
     Route: 048
     Dates: start: 20220823
  63. PACKED RBC [Concomitant]
     Indication: Anaemia
     Route: 042
     Dates: start: 20220818, end: 20220818
  64. ENOXAPARIN SODIUM [Concomitant]
     Active Substance: ENOXAPARIN SODIUM
     Route: 058
     Dates: start: 20220820, end: 20220823
  65. HEPA-MERZ INFUSION [Concomitant]
     Indication: Aspartate aminotransferase increased
     Route: 058
     Dates: start: 20220822, end: 20220822
  66. HEPA-MERZ INFUSION [Concomitant]
     Indication: Alanine aminotransferase increased
  67. MOROXACIN [Concomitant]
     Route: 048
     Dates: start: 20220823
  68. ALOXI [Concomitant]
     Active Substance: PALONOSETRON HYDROCHLORIDE
     Route: 042
     Dates: start: 20220829
  69. GASOCOL [Concomitant]
     Route: 048
     Dates: start: 20220829
  70. RAMOSETRON HYDROCHLORIDE [Concomitant]
     Active Substance: RAMOSETRON HYDROCHLORIDE
     Indication: Nausea
     Route: 042
     Dates: start: 20220829
  71. NEXIUM [Concomitant]
     Active Substance: ESOMEPRAZOLE MAGNESIUM
     Dosage: 120 MG ALSO RECEIVED
     Route: 042
     Dates: start: 20220831, end: 20220901
  72. NEXIUM [Concomitant]
     Active Substance: ESOMEPRAZOLE MAGNESIUM
     Route: 048
     Dates: start: 20220902, end: 20220911
  73. ZYPREXA ZYDIS [Concomitant]
     Active Substance: OLANZAPINE
     Indication: Delirium
     Route: 048
     Dates: start: 20220901
  74. BROPIUM [Concomitant]
     Route: 030
     Dates: start: 20220901, end: 20220901
  75. SURFOLASE [Concomitant]
     Route: 048
  76. ACETYLCYSTEINE [Concomitant]
     Active Substance: ACETYLCYSTEINE
     Route: 042
     Dates: start: 20220902, end: 20220913
  77. LEVOFLOXACIN [Concomitant]
     Active Substance: LEVOFLOXACIN
     Indication: Pneumonia
     Route: 042
     Dates: start: 20220903, end: 20220912
  78. POTASSIUM CHLORIDE [Concomitant]
     Active Substance: POTASSIUM CHLORIDE
     Indication: Hypokalaemia
     Route: 048
     Dates: start: 20220905, end: 20220906
  79. DULACKHAN EASY [Concomitant]
     Indication: Constipation
     Route: 048
     Dates: start: 20220911
  80. BANAN [Concomitant]
     Active Substance: CEFPODOXIME PROXETIL
     Route: 048
     Dates: start: 20220913, end: 20220918
  81. SETOPEN [Concomitant]
     Route: 048
     Dates: start: 20220913, end: 20220918
  82. LEVOPLUS [LEVOFLOXACIN] [Concomitant]
     Route: 048
     Dates: start: 20220913, end: 20220918
  83. AMINO ACIDS\DEXTROSE\ELECTROLYTES NOS\SOYBEAN OIL [Concomitant]
     Active Substance: AMINO ACIDS\DEXTROSE\ELECTROLYTES NOS\SOYBEAN OIL
     Route: 042
     Dates: start: 20220918
  84. BEAROBAN [Concomitant]
     Route: 061
     Dates: start: 20221012, end: 20221015
  85. CALCIUM CHLORIDE\POTASSIUM CHLORIDE\SODIUM CHLORIDE\SODIUM LACTATE [Concomitant]
     Active Substance: CALCIUM CHLORIDE\POTASSIUM CHLORIDE\SODIUM CHLORIDE\SODIUM LACTATE
     Indication: Prophylaxis
     Route: 042
     Dates: start: 20221211

REACTIONS (4)
  - Acute kidney injury [Recovered/Resolved]
  - Pericardial effusion [Recovered/Resolved]
  - Acute kidney injury [Not Recovered/Not Resolved]
  - Pneumonia [Recovered/Resolved]

NARRATIVE: CASE EVENT DATE: 20220620
